FAERS Safety Report 21118708 (Version 1)
Quarter: 2022Q3

REPORT INFORMATION
  Report Type: Spontaneous
  Country: US (occurrence: None)
  Receive Date: 20220721
  Receipt Date: 20220721
  Transmission Date: 20221027
  Serious: Yes (Other)
  Sender: FDA-Public Use
  Company Number: None

PATIENT
  Age: 62 Year
  Sex: Female
  Weight: 85.05 kg

DRUGS (2)
  1. BEBTELOVIMAB [Suspect]
     Active Substance: BEBTELOVIMAB
     Indication: COVID-19
     Dosage: OTHER FREQUENCY : ONCE;?OTHER ROUTE : INJECTION;?
     Route: 050
     Dates: start: 20220618
  2. VITAMIN D3 [Concomitant]
     Active Substance: CHOLECALCIFEROL

REACTIONS (12)
  - Headache [None]
  - Fatigue [None]
  - Dry mouth [None]
  - Thirst [None]
  - Alopecia [None]
  - Blood pressure systolic decreased [None]
  - Infusion related reaction [None]
  - Musculoskeletal chest pain [None]
  - Rash [None]
  - Taste disorder [None]
  - Parosmia [None]
  - Weight decreased [None]

NARRATIVE: CASE EVENT DATE: 20220618
